FAERS Safety Report 10117088 (Version 1)
Quarter: 2014Q2

REPORT INFORMATION
  Report Type: Report from Study
  Country: NL (occurrence: NL)
  Receive Date: 20140426
  Receipt Date: 20140426
  Transmission Date: 20141212
  Serious: Yes (Hospitalization)
  Sender: FDA-Public Use
  Company Number: NL-ASTRAZENECA-2014SE26730

PATIENT
  Age: 71 Year
  Sex: Male

DRUGS (6)
  1. TICAGRELOR [Suspect]
     Indication: ACUTE CORONARY SYNDROME
     Route: 048
     Dates: start: 20131224
  2. ASPIRIN [Suspect]
     Indication: ACUTE CORONARY SYNDROME
     Route: 065
     Dates: start: 20131224
  3. ATORVASTATIN [Concomitant]
  4. AMLODIPINE [Concomitant]
  5. PERINDOPRIL [Concomitant]
  6. METOPROLOL [Concomitant]

REACTIONS (1)
  - Transient ischaemic attack [Recovered/Resolved]
